FAERS Safety Report 7232688-4 (Version None)
Quarter: 2011Q1

REPORT INFORMATION
  Report Type: 
  Country: None (occurrence: None)
  Receive Date: 20110119
  Receipt Date: 20110113
  Transmission Date: 20110831
  Serious: Yes (Death)
  Sender: FDA-Public Use
  Company Number: FR-SANOFI-AVENTIS-2011SA001434

PATIENT
  Age: 64 Year
  Sex: Female

DRUGS (6)
  1. LOVENOX [Suspect]
     Indication: PULMONARY EMBOLISM
     Route: 058
     Dates: start: 20101211, end: 20101214
  2. TRIMEBUTINE [Concomitant]
     Route: 042
     Dates: start: 20101101, end: 20101216
  3. METHYLPREDNISOLONE HEMISUCCINATE [Concomitant]
     Route: 042
     Dates: end: 20101216
  4. TINZAPARIN SODIUM [Suspect]
     Indication: PULMONARY EMBOLISM
     Route: 058
     Dates: start: 20101128, end: 20101207
  5. AUGMENTIN '125' [Concomitant]
     Route: 042
     Dates: start: 20101101, end: 20101216
  6. PRIMPERAN TAB [Concomitant]
     Route: 042
     Dates: start: 20101101, end: 20101216

REACTIONS (3)
  - OESOPHAGEAL ULCER HAEMORRHAGE [None]
  - ANAEMIA [None]
  - HAEMATOMA [None]
